FAERS Safety Report 5237455-9 (Version None)
Quarter: 2007Q1

REPORT INFORMATION
  Report Type: 
  Country: None (occurrence: None)
  Receive Date: 20070213
  Receipt Date: 20070209
  Transmission Date: 20070707
  Serious: Yes (Life-Threatening, Hospitalization)
  Sender: FDA-Public Use
  Company Number: FR-BOEHRINGER INGELHEIM PHARMACEUTICALS, INC.-2007-FF-00214FF

PATIENT
  Sex: Male
  Weight: 2.9 kg

DRUGS (3)
  1. CATAPRES [Suspect]
     Route: 015
     Dates: start: 20061230, end: 20061230
  2. MARCAINE [Concomitant]
     Route: 015
     Dates: start: 20061230, end: 20061230
  3. SUFENTA [Concomitant]
     Route: 015
     Dates: start: 20061230, end: 20061230

REACTIONS (2)
  - APGAR SCORE LOW [None]
  - FOETAL DISTRESS SYNDROME [None]
